FAERS Safety Report 9901185 (Version 1)
Quarter: 2014Q1

REPORT INFORMATION
  Report Type: Spontaneous
  Country: US (occurrence: US)
  Receive Date: 20140217
  Receipt Date: 20140217
  Transmission Date: 20141002
  Serious: Yes (Other)
  Sender: FDA-Public Use
  Company Number: US-BAYER-2014-020234

PATIENT
  Age: 23 Year
  Sex: Female

DRUGS (3)
  1. AVELOX [Suspect]
     Indication: PNEUMONIA
     Dosage: 400 MG, QD
     Route: 048
     Dates: start: 20140116, end: 20140118
  2. TAMIFLU [Concomitant]
  3. BENZONATATE [Concomitant]

REACTIONS (5)
  - Adverse drug reaction [Recovered/Resolved]
  - Visual acuity reduced [Recovered/Resolved]
  - Vision blurred [Recovered/Resolved]
  - Tinnitus [Recovered/Resolved]
  - Cold sweat [Recovered/Resolved]
